FAERS Safety Report 10027496 (Version 1)
Quarter: 2014Q1

REPORT INFORMATION
  Report Type: Spontaneous
  Country: US (occurrence: US)
  Receive Date: 20140321
  Receipt Date: 20140321
  Transmission Date: 20141002
  Serious: No
  Sender: FDA-Public Use
  Company Number: US-PFIZER INC-2014079842

PATIENT
  Sex: Female

DRUGS (9)
  1. NEURONTIN [Suspect]
     Dosage: UNK
  2. ZOLOFT [Suspect]
     Dosage: UNK
  3. CALCIUM [Suspect]
     Dosage: UNK
  4. ZYRTEC [Suspect]
     Dosage: UNK
  5. ACETYLSALICYLIC ACID [Suspect]
     Dosage: UNK
  6. VITAMIN D [Suspect]
     Dosage: UNK
  7. ZOVIRAX [Suspect]
     Dosage: UNK
  8. SINGULAIR [Suspect]
     Dosage: UNK
  9. PRECOSE [Suspect]
     Dosage: UNK

REACTIONS (1)
  - Drug hypersensitivity [Unknown]
